FAERS Safety Report 6474751-1 (Version None)
Quarter: 2009Q4

REPORT INFORMATION
  Report Type: 
  Country: None (occurrence: None)
  Receive Date: 20091130
  Receipt Date: 20091110
  Transmission Date: 20100525
  Serious: Yes (Hospitalization, Other)
  Sender: FDA-Public Use
  Company Number: 2009AP004529

PATIENT
  Age: 37 Year
  Sex: Female

DRUGS (8)
  1. MYCOPHENOLATE MOFETIL [Suspect]
     Indication: IMMUNOSUPPRESSION
  2. MYCOPHENOLATE MOFETIL [Suspect]
     Indication: PANCREAS TRANSPLANT
  3. TACROLIMUS [Suspect]
     Indication: IMMUNOSUPPRESSION
  4. TACROLIMUS [Suspect]
     Indication: PANCREAS TRANSPLANT
  5. CAMPATH [Suspect]
     Indication: IMMUNOSUPPRESSION
  6. CAMPATH [Suspect]
     Indication: PANCREAS TRANSPLANT
  7. IMMUNE GLOBULIN (HUMAN) [Suspect]
     Indication: ERYTHEMA INFECTIOSUM
     Dosage: IV
     Route: 042
  8. FLUDROCORTISONE ACETATE [Concomitant]

REACTIONS (8)
  - ANAEMIA [None]
  - ARTERIAL OCCLUSIVE DISEASE [None]
  - ARTERIAL THROMBOSIS [None]
  - ERYTHEMA INFECTIOSUM [None]
  - GRAFT THROMBOSIS [None]
  - MENINGISM [None]
  - PANCREATITIS ACUTE [None]
  - PANCREATITIS NECROTISING [None]
